FAERS Safety Report 18132162 (Version 2)
Quarter: 2020Q3

REPORT INFORMATION
  Report Type: Report from Study
  Country: None (occurrence: US)
  Receive Date: 20200811
  Receipt Date: 20200813
  Transmission Date: 20201103
  Serious: No
  Sender: FDA-Public Use
  Company Number: US-ABBVIE-20K-163-3516952-00

PATIENT
  Age: 69 Year
  Sex: Male

DRUGS (1)
  1. HUMIRA [Suspect]
     Active Substance: ADALIMUMAB
     Indication: CROHN^S DISEASE
     Route: 058
     Dates: start: 20191024

REACTIONS (6)
  - Anxiety [Recovering/Resolving]
  - Rectal haemorrhage [Recovered/Resolved]
  - Colitis [Unknown]
  - Headache [Recovering/Resolving]
  - Cough [Unknown]
  - Large intestine polyp [Unknown]

NARRATIVE: CASE EVENT DATE: 202007
